FAERS Safety Report 18467002 (Version 1)
Quarter: 2020Q4

REPORT INFORMATION
  Report Type: Spontaneous
  Country: US (occurrence: US)
  Receive Date: 20201103
  Receipt Date: 20201103
  Transmission Date: 20210114
  Serious: Yes (Life-Threatening, Hospitalization, Disabling, Other)
  Sender: FDA-Public Use
  Company Number: None

PATIENT
  Age: 62 Year
  Sex: Female
  Weight: 90.72 kg

DRUGS (15)
  1. LETROZOLE. [Concomitant]
     Active Substance: LETROZOLE
  2. RECLAST [Concomitant]
     Active Substance: ZOLEDRONIC ACID
  3. ADVANCED DIGESTIVE PROBIOTIC [Concomitant]
  4. VITAMIN D3 [Concomitant]
     Active Substance: CHOLECALCIFEROL
  5. PEPTO-BISMOL [Concomitant]
     Active Substance: BISMUTH SUBSALICYLATE
  6. CLOTRIMAZOLE. [Concomitant]
     Active Substance: CLOTRIMAZOLE
  7. VITAMIN B12 [Concomitant]
     Active Substance: CYANOCOBALAMIN
  8. HAIR-SKIN-NAILS GUMMIES [Concomitant]
  9. ANASTROZOLE. [Concomitant]
     Active Substance: ANASTROZOLE
  10. ACETAMINOPHEN. [Concomitant]
     Active Substance: ACETAMINOPHEN
  11. ALLER CLEAR [Concomitant]
  12. ESTRACE [Suspect]
     Active Substance: ESTRADIOL
     Indication: VULVOVAGINAL DRYNESS
     Dosage: ?      OTHER ROUTE:VAGINAL INJECTOPM?
     Dates: start: 20160606, end: 20180101
  13. CALCIUM [Concomitant]
     Active Substance: CALCIUM
  14. PEPOGEST [Concomitant]
  15. PROLIA [Concomitant]
     Active Substance: DENOSUMAB

REACTIONS (2)
  - Mastectomy [None]
  - Invasive ductal breast carcinoma [None]

NARRATIVE: CASE EVENT DATE: 20180206
